FAERS Safety Report 11932704 (Version 2)
Quarter: 2021Q1

REPORT INFORMATION
  Report Type: Spontaneous
  Country: US (occurrence: US)
  Receive Date: 20160120
  Receipt Date: 20210311
  Transmission Date: 20210419
  Serious: Yes (Other)
  Sender: FDA-Public Use
  Company Number: US-LUNDBECK-DKLU2008821

PATIENT
  Age: 18 Year
  Sex: Female

DRUGS (2)
  1. NORTHERA [Suspect]
     Active Substance: DROXIDOPA
     Indication: ORTHOSTATIC HYPOTENSION
     Route: 065
     Dates: start: 20151130
  2. NORTHERA [Suspect]
     Active Substance: DROXIDOPA
     Indication: AUTONOMIC NEUROPATHY
     Route: 065

REACTIONS (5)
  - Eye pain [Unknown]
  - Eye disorder [Unknown]
  - Ophthalmological examination abnormal [Unknown]
  - Optic neuritis [Unknown]
  - Vision blurred [Unknown]

NARRATIVE: CASE EVENT DATE: 201511
